FAERS Safety Report 7381698-5 (Version None)
Quarter: 2011Q1

REPORT INFORMATION
  Report Type: 
  Country: None (occurrence: None)
  Receive Date: 20110329
  Receipt Date: 20101020
  Transmission Date: 20110831
  Serious: Yes (Other)
  Sender: FDA-Public Use
  Company Number: US-BAYER-201021820NA

PATIENT
  Sex: Female
  Weight: 54.422 kg

DRUGS (7)
  1. YAZ [Suspect]
     Dosage: UNK
     Dates: end: 20090801
  2. ANTIBIOTICS [Concomitant]
  3. UNCODEABLE ^UNCLASSIFIABLE^ [Concomitant]
  4. METFORMIN HCL [Concomitant]
     Dosage: UNK
     Dates: start: 20040101, end: 20050101
  5. UNCODEABLE ^UNCLASSIFIABLE^ [Concomitant]
  6. PROMETHAZINE [Concomitant]
  7. YAZ [Suspect]
     Indication: ORAL CONTRACEPTION
     Dosage: UNK
     Route: 048
     Dates: start: 20071201, end: 20090301

REACTIONS (6)
  - CHOLELITHIASIS [None]
  - POST PROCEDURAL DIARRHOEA [None]
  - ABDOMINAL PAIN [None]
  - GALLBLADDER DISORDER [None]
  - PROCEDURAL PAIN [None]
  - CHOLECYSTITIS [None]
